FAERS Safety Report 24929324 (Version 1)
Quarter: 2025Q1

REPORT INFORMATION
  Report Type: Spontaneous
  Country: US (occurrence: US)
  Receive Date: 20250205
  Receipt Date: 20250205
  Transmission Date: 20250408
  Serious: Yes (Other)
  Sender: ALKERMES
  Company Number: US-ALKERMES INC.-ALK-2025-000292

PATIENT
  Sex: Female

DRUGS (2)
  1. VIVITROL [Suspect]
     Active Substance: NALTREXONE
     Indication: Alcoholism
     Route: 030
     Dates: start: 202412
  2. UNSPECIFIED INGREDIENT [Concomitant]
     Active Substance: UNSPECIFIED INGREDIENT
     Indication: Product used for unknown indication
     Route: 065

REACTIONS (7)
  - Hypersensitivity [Not Recovered/Not Resolved]
  - Balance disorder [Unknown]
  - Generalised oedema [Unknown]
  - Gait disturbance [Unknown]
  - Arthritis [Unknown]
  - Injection site swelling [Not Recovered/Not Resolved]
  - Injection site induration [Unknown]

NARRATIVE: CASE EVENT DATE: 20241201
